FAERS Safety Report 9290231 (Version 3)
Quarter: 2013Q3

REPORT INFORMATION
  Report Type: Spontaneous
  Country: US (occurrence: US)
  Receive Date: 20130515
  Receipt Date: 20130905
  Transmission Date: 20140515
  Serious: Yes (Other)
  Sender: FDA-Public Use
  Company Number: US-PFIZER INC-2013145864

PATIENT
  Age: 51 Year
  Sex: Female
  Weight: 54.4 kg

DRUGS (14)
  1. PREMPRO [Suspect]
     Indication: HORMONE REPLACEMENT THERAPY
     Dosage: UNK, 1X/DAY
     Route: 048
     Dates: start: 201212, end: 201305
  2. LYRICA [Suspect]
     Dosage: UNK
  3. WELLBUTRIN [Concomitant]
     Dosage: 150 MG, UNK
  4. TOPAMAX [Concomitant]
     Dosage: 50 MG, 3X/DAY
  5. CYMBALTA [Concomitant]
     Dosage: 30 MG, 2X/DAY
  6. ABILIFY [Concomitant]
     Dosage: 1 MG, UNK
  7. NEXIUM [Concomitant]
     Dosage: 40 MG, UNK
  8. LOVASTATIN [Concomitant]
     Indication: BLOOD TRIGLYCERIDES INCREASED
     Dosage: 20 MG, UNK
  9. TRICOR [Concomitant]
     Indication: BLOOD TRIGLYCERIDES INCREASED
     Dosage: UNK
  10. DIAZEPAM [Concomitant]
     Dosage: 5 MG, 3X/DAY
  11. NORCO [Concomitant]
     Dosage: 10/325 MG, 6X/DAY
  12. SUCRALFATE [Concomitant]
     Indication: DYSPEPSIA
     Dosage: 1 G, FOUR TIMES A DAY AS NEEDED
  13. MIRALAX (POLYETHYLENE GLYCOL 3350) [Concomitant]
     Indication: CONSTIPATION
     Dosage: UNK, 1X/DAY
  14. PHILLIPS^ MILK OF MAGNESIA [Concomitant]
     Dosage: UNK, WEEKLY

REACTIONS (9)
  - Pneumonia [Unknown]
  - Pulmonary congestion [Unknown]
  - Irritability [Not Recovered/Not Resolved]
  - Insomnia [Not Recovered/Not Resolved]
  - Night sweats [Not Recovered/Not Resolved]
  - Crying [Not Recovered/Not Resolved]
  - Migraine [Not Recovered/Not Resolved]
  - Headache [Not Recovered/Not Resolved]
  - Mental disorder [Unknown]
